FAERS Safety Report 26065549 (Version 3)
Quarter: 2025Q4

REPORT INFORMATION
  Report Type: Spontaneous
  Country: US (occurrence: US)
  Receive Date: 20251119
  Receipt Date: 20251202
  Transmission Date: 20260118
  Serious: Yes (Hospitalization, Other)
  Sender: Vantive US Healthcare
  Company Number: US-VANTIVE-2025VAN005232

PATIENT
  Sex: Female

DRUGS (1)
  1. EXTRANEAL [Suspect]
     Active Substance: CALCIUM CHLORIDE\ICODEXTRIN\MAGNESIUM CHLORIDE\SODIUM CHLORIDE\SODIUM LACTATE
     Route: 033

REACTIONS (7)
  - Urinary tract infection [Unknown]
  - Condition aggravated [Unknown]
  - Sepsis [Unknown]
  - Hyponatraemia [Unknown]
  - Acute kidney injury [Unknown]
  - Noninfectious peritonitis [Unknown]
  - Blood osmolarity increased [Unknown]
